FAERS Safety Report 12001734 (Version 4)
Quarter: 2016Q3

REPORT INFORMATION
  Report Type: Report from Study
  Country: US (occurrence: US)
  Receive Date: 20160204
  Receipt Date: 20160729
  Transmission Date: 20161109
  Serious: Yes (Other)
  Sender: FDA-Public Use
  Company Number: US-JNJFOC-20151022036

PATIENT
  Age: 57 Year
  Sex: Male

DRUGS (4)
  1. IMBRUVICA [Suspect]
     Active Substance: IBRUTINIB
     Indication: CHRONIC LYMPHOCYTIC LEUKAEMIA
     Route: 048
     Dates: start: 20160118, end: 2016
  2. IMBRUVICA [Suspect]
     Active Substance: IBRUTINIB
     Indication: CHRONIC LYMPHOCYTIC LEUKAEMIA
     Route: 048
     Dates: start: 20150709, end: 201512
  3. SIMVASTATIN. [Concomitant]
     Active Substance: SIMVASTATIN
  4. LIPITOR [Concomitant]
     Active Substance: ATORVASTATIN CALCIUM

REACTIONS (13)
  - Nodule [Unknown]
  - Essential hypertension [Unknown]
  - Uveitis [Unknown]
  - Splenomegaly [Unknown]
  - Insomnia [Unknown]
  - Visual impairment [Unknown]
  - Depression [Unknown]
  - Hyperlipidaemia [Unknown]
  - Photopsia [Recovered/Resolved]
  - Frequent bowel movements [Recovered/Resolved]
  - Skin haemorrhage [Unknown]
  - Headache [Recovered/Resolved]
  - Rash erythematous [Unknown]

NARRATIVE: CASE EVENT DATE: 2015
